FAERS Safety Report 16896630 (Version 2)
Quarter: 2019Q4

REPORT INFORMATION
  Report Type: Spontaneous
  Country: IE (occurrence: IE)
  Receive Date: 20191008
  Receipt Date: 20191029
  Transmission Date: 20200122
  Serious: Yes (Death, Other)
  Sender: FDA-Public Use
  Company Number: IE-LUNDBECK-DKLU3005778

PATIENT
  Sex: Male

DRUGS (1)
  1. FRISIUM [Suspect]
     Active Substance: CLOBAZAM
     Indication: EPILEPSY
     Route: 048

REACTIONS (1)
  - Death [Fatal]
